FAERS Safety Report 7446044-7 (Version None)
Quarter: 2011Q2

REPORT INFORMATION
  Report Type: 
  Country: None (occurrence: None)
  Receive Date: 20110429
  Receipt Date: 20110418
  Transmission Date: 20111010
  Serious: Yes (Hospitalization)
  Sender: FDA-Public Use
  Company Number: CA-JNJFOC-20110308011

PATIENT
  Sex: Female
  Weight: 60 kg

DRUGS (9)
  1. EFFEXOR [Concomitant]
  2. REMICADE [Suspect]
     Indication: CROHN'S DISEASE
     Route: 042
  3. FLAGYL [Concomitant]
  4. VITAMIN D [Concomitant]
  5. CIPRO [Concomitant]
  6. TOBRAMYCIN [Concomitant]
  7. CALCIUM [Concomitant]
  8. PREVACID [Concomitant]
  9. MEDROXYPROGESTERONE [Concomitant]

REACTIONS (2)
  - HYSTERECTOMY [None]
  - POST PROCEDURAL HAEMORRHAGE [None]
